FAERS Safety Report 15491607 (Version 2)
Quarter: 2018Q4

REPORT INFORMATION
  Report Type: Spontaneous
  Country: US (occurrence: US)
  Receive Date: 20181012
  Receipt Date: 20181016
  Transmission Date: 20190205
  Serious: Yes (Hospitalization, Other)
  Sender: FDA-Public Use
  Company Number: US-ROCHE-2196623

PATIENT
  Age: 77 Year
  Sex: Female
  Weight: 72.64 kg

DRUGS (8)
  1. COTELLIC [Suspect]
     Active Substance: COBIMETINIB
     Indication: METASTATIC MALIGNANT MELANOMA
     Dosage: 3 PILLS
     Route: 065
     Dates: start: 20180928, end: 20181002
  2. COTELLIC [Suspect]
     Active Substance: COBIMETINIB
     Route: 065
     Dates: end: 20181009
  3. ZELBORAF [Suspect]
     Active Substance: VEMURAFENIB
     Indication: METASTATIC MALIGNANT MELANOMA
     Dosage: 8 PILLS
     Route: 065
     Dates: start: 20180928, end: 20181002
  4. ZELBORAF [Suspect]
     Active Substance: VEMURAFENIB
     Route: 065
     Dates: end: 20181009
  5. BENADRYL [Concomitant]
     Active Substance: DIPHENHYDRAMINE HYDROCHLORIDE
     Route: 065
     Dates: start: 20181004
  6. COTELLIC [Suspect]
     Active Substance: COBIMETINIB
     Dosage: 2 PILLS
     Route: 065
     Dates: start: 20181004
  7. TYLENOL [Concomitant]
     Active Substance: ACETAMINOPHEN
     Route: 065
     Dates: start: 20181004
  8. ZELBORAF [Suspect]
     Active Substance: VEMURAFENIB
     Dosage: 4 PILLS
     Route: 065
     Dates: start: 20181004

REACTIONS (12)
  - Nausea [Not Recovered/Not Resolved]
  - Incontinence [Not Recovered/Not Resolved]
  - Angioedema [Not Recovered/Not Resolved]
  - Bladder disorder [Not Recovered/Not Resolved]
  - Constipation [Not Recovered/Not Resolved]
  - Fatigue [Not Recovered/Not Resolved]
  - Influenza like illness [Unknown]
  - Rash [Not Recovered/Not Resolved]
  - Pyrexia [Not Recovered/Not Resolved]
  - Amnesia [Not Recovered/Not Resolved]
  - Stevens-Johnson syndrome [Unknown]
  - Headache [Not Recovered/Not Resolved]

NARRATIVE: CASE EVENT DATE: 20181001
